FAERS Safety Report 9852673 (Version 1)
Quarter: 2014Q1

REPORT INFORMATION
  Report Type: Spontaneous
  Country: US (occurrence: US)
  Receive Date: 20140129
  Receipt Date: 20140129
  Transmission Date: 20141002
  Serious: Yes (Other)
  Sender: FDA-Public Use
  Company Number: US-PFIZER INC-2014022987

PATIENT
  Age: 74 Year
  Sex: Female
  Weight: 81.63 kg

DRUGS (7)
  1. LYRICA [Suspect]
     Indication: MUSCULOSKELETAL PAIN
     Dosage: 50 MG, 3X/DAY
     Dates: start: 201310
  2. LYRICA [Suspect]
     Indication: NECK PAIN
  3. LYRICA [Suspect]
     Indication: BACK PAIN
  4. LISINOPRIL W/HYDROCHLOROTHIAZIDE [Concomitant]
     Indication: HYPERTENSION
     Dosage: 10/12.5 MG , UNK
  5. LEVOTHYROXINE [Concomitant]
     Indication: HYPOTHYROIDISM
     Dosage: UNK
  6. WELLBUTRIN [Concomitant]
     Indication: DEPRESSION
     Dosage: 150 MG, 2X/DAY
  7. OMEPRAZOLE [Concomitant]
     Indication: GASTROOESOPHAGEAL REFLUX DISEASE
     Dosage: UNK

REACTIONS (5)
  - Off label use [Not Recovered/Not Resolved]
  - Back disorder [Unknown]
  - Vision blurred [Recovered/Resolved]
  - Vitreous floaters [Recovered/Resolved]
  - Eye disorder [Recovered/Resolved]
